FAERS Safety Report 10300122 (Version 1)
Quarter: 2014Q3

REPORT INFORMATION
  Report Type: Spontaneous
  Country: US (occurrence: US)
  Receive Date: 20140711
  Receipt Date: 20140711
  Transmission Date: 20150326
  Serious: No
  Sender: FDA-Public Use
  Company Number: US-GILEAD-2013-0084037

PATIENT
  Age: 56 Year
  Sex: Male

DRUGS (1)
  1. LETAIRIS [Suspect]
     Active Substance: AMBRISENTAN
     Indication: PULMONARY ARTERIAL HYPERTENSION
     Dosage: 5 MG, QD
     Route: 048
     Dates: start: 20120123

REACTIONS (6)
  - Peripheral swelling [Unknown]
  - Pain in jaw [Unknown]
  - Pain [Unknown]
  - Fatigue [Unknown]
  - Temperature intolerance [Unknown]
  - Headache [Unknown]

NARRATIVE: CASE EVENT DATE: 20120130
